FAERS Safety Report 5518715-0 (Version None)
Quarter: 2007Q4

REPORT INFORMATION
  Report Type: 
  Country: None (occurrence: None)
  Receive Date: 20071115
  Receipt Date: 20071102
  Transmission Date: 20080405
  Serious: Yes (Hospitalization, Other)
  Sender: FDA-Public Use
  Company Number: US-ELI_LILLY_AND_COMPANY-US200711000545

PATIENT
  Sex: Female

DRUGS (13)
  1. FORTEO [Suspect]
     Dosage: 3 ML, UNK
     Dates: start: 20071101, end: 20071101
  2. FORTEO [Suspect]
  3. DULCOLAX [Concomitant]
  4. ENABLEX                            /01760402/ [Concomitant]
  5. INSULIN [Concomitant]
  6. DEXTROSE [Concomitant]
     Indication: EMERGENCY CARE
     Dosage: UNK, AS NEEDED
  7. DURAGESIC-100 [Concomitant]
  8. SYNTHROID [Concomitant]
  9. MILK OF MAGNESIA [Concomitant]
  10. METHADONE [Concomitant]
  11. REGLAN [Concomitant]
  12. MORPHINE [Concomitant]
  13. PROTONIX [Concomitant]

REACTIONS (3)
  - ACCIDENTAL OVERDOSE [None]
  - CELLULITIS [None]
  - MEDICATION ERROR [None]
